FAERS Safety Report 6255207-8 (Version None)
Quarter: 2009Q2

REPORT INFORMATION
  Report Type: 
  Country: None (occurrence: None)
  Receive Date: 20090630
  Receipt Date: 20090618
  Transmission Date: 20091009
  Serious: Yes (Disabling)
  Sender: FDA-Public Use
  Company Number: GXKR2009DK07128

PATIENT
  Age: 57 Year
  Sex: Female
  Weight: 70 kg

DRUGS (2)
  1. DOXYCYCLINE [Suspect]
     Indication: MALARIA PROPHYLAXIS
     Dosage: 1 DF/DAY, ORAL
     Route: 048
     Dates: start: 20060101, end: 20060210
  2. EFEXOR - SLOW RELEASE (VENLAFAXINE HYDROCHLORIDE) SLOW RELEASE TABLET [Concomitant]

REACTIONS (1)
  - HYPOACUSIS [None]
